FAERS Safety Report 14925419 (Version 2)
Quarter: 2018Q2

REPORT INFORMATION
  Report Type: Report from Study
  Country: US (occurrence: US)
  Receive Date: 20180522
  Receipt Date: 20180615
  Transmission Date: 20180711
  Serious: Yes (Death, Hospitalization, Other)
  Sender: FDA-Public Use
  Company Number: US-TAKEDA-2018TUS017554

PATIENT
  Sex: Male

DRUGS (1)
  1. PONATINIB [Suspect]
     Active Substance: PONATINIB
     Indication: PANCYTOPENIA
     Dosage: 15 MG, QD
     Route: 048
     Dates: start: 201804

REACTIONS (3)
  - Off label use [Unknown]
  - Death [Fatal]
  - Blast cell crisis [Unknown]
